FAERS Safety Report 13175004 (Version 1)
Quarter: 2017Q1

REPORT INFORMATION
  Report Type: Spontaneous
  Country: US (occurrence: US)
  Receive Date: 20170201
  Receipt Date: 20170201
  Transmission Date: 20170428
  Serious: Yes (Other)
  Sender: FDA-Public Use
  Company Number: US-ABBVIE-16K-163-1812842-00

PATIENT
  Age: 45 Year
  Sex: Female
  Weight: 108.96 kg

DRUGS (2)
  1. MULTIVITAMIN [Concomitant]
     Active Substance: VITAMINS
     Indication: PRODUCT USED FOR UNKNOWN INDICATION
  2. HUMIRA [Suspect]
     Active Substance: ADALIMUMAB
     Indication: RHEUMATIC DISORDER
     Route: 058
     Dates: start: 20161104, end: 20161117

REACTIONS (16)
  - Mobility decreased [Recovered/Resolved]
  - Tremor [Not Recovered/Not Resolved]
  - Tinnitus [Recovered/Resolved]
  - Chills [Recovered/Resolved]
  - Asthenia [Recovering/Resolving]
  - Influenza [Unknown]
  - Pyrexia [Recovered/Resolved with Sequelae]
  - Drug dispensing error [Unknown]
  - Pain [Not Recovered/Not Resolved]
  - Cardiac flutter [Recovered/Resolved]
  - Blood test abnormal [Not Recovered/Not Resolved]
  - Arthralgia [Not Recovered/Not Resolved]
  - Malaise [Unknown]
  - Sepsis [Unknown]
  - Root canal infection [Unknown]
  - Abasia [Recovered/Resolved]

NARRATIVE: CASE EVENT DATE: 2016
